FAERS Safety Report 13906413 (Version 1)
Quarter: 2017Q3

REPORT INFORMATION
  Report Type: Spontaneous
  Country: FR (occurrence: FR)
  Receive Date: 20170825
  Receipt Date: 20170825
  Transmission Date: 20171127
  Serious: Yes (Other)
  Sender: FDA-Public Use
  Company Number: FR-BAYER-2017-158880

PATIENT
  Age: 32 Year
  Sex: Female

DRUGS (1)
  1. MIRENA [Suspect]
     Active Substance: LEVONORGESTREL
     Indication: CONTRACEPTION
     Dosage: 20 MCG/24HR, CONT
     Route: 015
     Dates: start: 20150416, end: 20170728

REACTIONS (21)
  - Arthralgia [Unknown]
  - Pelvic pain [Unknown]
  - Myalgia [Unknown]
  - Hyperuricaemia [Unknown]
  - Language disorder [Unknown]
  - Dizziness [Unknown]
  - Hypertriglyceridaemia [Unknown]
  - Hyperhidrosis [Unknown]
  - Abnormal weight gain [Unknown]
  - Amnesia [Unknown]
  - Asthenia [Unknown]
  - Mental fatigue [Unknown]
  - Formication [Unknown]
  - Nervousness [Unknown]
  - Back pain [Unknown]
  - Stress [Unknown]
  - Hirsutism [Unknown]
  - Alopecia [Unknown]
  - Loss of libido [Unknown]
  - Haematuria [Unknown]
  - Sleep disorder [Unknown]

NARRATIVE: CASE EVENT DATE: 201511
